FAERS Safety Report 6918623-4 (Version None)
Quarter: 2010Q3

REPORT INFORMATION
  Report Type: 
  Country: None (occurrence: None)
  Receive Date: 20100811
  Receipt Date: 20100730
  Transmission Date: 20110219
  Serious: Yes (Hospitalization)
  Sender: FDA-Public Use
  Company Number: JP-PFIZER INC-2010099019

PATIENT
  Age: 78 Year
  Sex: Female
  Weight: 41 kg

DRUGS (6)
  1. CELECOX [Suspect]
     Dosage: 100 MG, UID/1X/DAY
     Route: 048
     Dates: start: 20100501, end: 20100511
  2. MUCOSTA [Suspect]
     Dosage: 100 MG, UID/1X/DAY
     Route: 048
     Dates: start: 20100501, end: 20100511
  3. PERSANTINE [Suspect]
     Dosage: 25 MG, UID/1X/DAY
     Route: 048
     Dates: end: 20100511
  4. LIVALO [Suspect]
     Dosage: 1 MG, UID/1X/DAY
     Route: 048
     Dates: end: 20100511
  5. MAGNESIUM OXIDE [Concomitant]
     Dosage: UNK
  6. ALOSENN [Concomitant]
     Dosage: UNK

REACTIONS (1)
  - TOXIC SKIN ERUPTION [None]
